FAERS Safety Report 7351368-8 (Version None)
Quarter: 2011Q1

REPORT INFORMATION
  Report Type: 
  Country: None (occurrence: None)
  Receive Date: 20110314
  Receipt Date: 20110307
  Transmission Date: 20110831
  Serious: Yes (Death)
  Sender: FDA-Public Use
  Company Number: PHHY2011US19286

PATIENT
  Sex: Male

DRUGS (2)
  1. PROAIR HFA [Concomitant]
  2. FORADIL [Suspect]
     Indication: ASTHMA

REACTIONS (1)
  - DEATH [None]
